FAERS Safety Report 16676799 (Version 1)
Quarter: 2019Q3

REPORT INFORMATION
  Report Type: Spontaneous
  Country: JP (occurrence: JP)
  Receive Date: 20190807
  Receipt Date: 20190807
  Transmission Date: 20191004
  Serious: Yes (Hospitalization, Other)
  Sender: FDA-Public Use
  Company Number: JP-009507513-1907JPN003874J

PATIENT
  Age: 67 Year
  Sex: Female

DRUGS (5)
  1. CISPLATIN. [Suspect]
     Active Substance: CISPLATIN
     Dosage: UNK
     Route: 065
     Dates: start: 20190222, end: 2019
  2. KEYTRUDA [Suspect]
     Active Substance: PEMBROLIZUMAB
     Indication: NON-SMALL CELL LUNG CANCER
     Dosage: 200 MILLIGRAM, Q3W
     Route: 041
     Dates: start: 20190222, end: 2019
  3. ALIMTA [Suspect]
     Active Substance: PEMETREXED DISODIUM
     Dosage: UNK
     Route: 065
     Dates: start: 20190222, end: 2019
  4. DOCETAXEL. [Suspect]
     Active Substance: DOCETAXEL
     Indication: MALIGNANT NEOPLASM PROGRESSION
     Dosage: UNK
     Route: 065
     Dates: start: 2019
  5. RAMUCIRUMAB [Suspect]
     Active Substance: RAMUCIRUMAB
     Indication: MALIGNANT NEOPLASM PROGRESSION
     Dosage: UNK
     Route: 065
     Dates: start: 2019

REACTIONS (2)
  - Colitis ulcerative [Unknown]
  - Malignant neoplasm progression [Unknown]

NARRATIVE: CASE EVENT DATE: 2019
